FAERS Safety Report 19946420 (Version 1)
Quarter: 2021Q4

REPORT INFORMATION
  Report Type: Spontaneous
  Country: GB (occurrence: GB)
  Receive Date: 20211013
  Receipt Date: 20211013
  Transmission Date: 20220303
  Serious: Yes (Death, Hospitalization)
  Sender: FDA-Public Use
  Company Number: GB-SA-SAC20210730000057

PATIENT
  Age: 79 Year
  Sex: Female

DRUGS (19)
  1. TRASTUZUMAB [Suspect]
     Active Substance: TRASTUZUMAB
     Indication: HER2 positive breast cancer
     Route: 058
     Dates: start: 20150819
  2. FULVESTRANT [Suspect]
     Active Substance: FULVESTRANT
     Indication: HER2 positive breast cancer
     Route: 058
     Dates: start: 20150331, end: 20150728
  3. EXEMESTANE [Suspect]
     Active Substance: EXEMESTANE
     Indication: HER2 positive breast cancer
     Route: 048
     Dates: start: 20160113
  4. LETROZOLE [Suspect]
     Active Substance: LETROZOLE
     Indication: HER2 positive breast cancer
     Route: 048
     Dates: start: 20150819
  5. ASPIRIN [Concomitant]
     Active Substance: ASPIRIN
     Dosage: UNK; ;
     Route: 048
     Dates: start: 20150716
  6. ATORVASTATIN [Concomitant]
     Active Substance: ATORVASTATIN
     Dosage: UNK; ;
  7. BENDROFLUMETHIAZIDE [Concomitant]
     Active Substance: BENDROFLUMETHIAZIDE
  8. BISOPROLOL [Concomitant]
     Active Substance: BISOPROLOL
  9. CLOPIDOGREL [Concomitant]
     Active Substance: CLOPIDOGREL BISULFATE
     Dosage: UNK; ;
  10. COCODAMOL [Concomitant]
     Active Substance: ACETAMINOPHEN\CODEINE PHOSPHATE
     Dosage: TIME INTERVAL: 0.25 D; ;
     Route: 048
     Dates: start: 20150716
  11. DENOSUMAB [Concomitant]
     Active Substance: DENOSUMAB
     Dosage: UNK; ;
     Route: 042
     Dates: start: 20150530, end: 20150728
  12. GLYCERIN [Concomitant]
     Active Substance: GLYCERIN
     Dosage: UNK; ;
     Route: 054
     Dates: start: 20150819
  13. POLYETHYLENE GLYCOLS [Concomitant]
     Active Substance: POLYETHYLENE GLYCOLS
     Dosage: UNK; ;
     Route: 048
  14. RAMIPRIL [Concomitant]
     Active Substance: RAMIPRIL
     Dosage: UNK; ;
     Route: 048
     Dates: start: 20150716
  15. SIMVASTATIN [Concomitant]
     Active Substance: SIMVASTATIN
     Dosage: UNK; ;
     Route: 048
     Dates: start: 20150716
  16. TRAMADOL [Concomitant]
     Active Substance: TRAMADOL
     Dosage: TIME INTERVAL: 0.25 D; ;
     Route: 048
     Dates: start: 20150716
  17. TRIMETHOPRIM [Concomitant]
     Active Substance: TRIMETHOPRIM
  18. LACTULOSE [Concomitant]
     Active Substance: LACTULOSE
  19. OMEPRAZOLE [Concomitant]
     Active Substance: OMEPRAZOLE

REACTIONS (3)
  - Disease progression [Fatal]
  - Ejection fraction decreased [Recovered/Resolved]
  - Localised infection [Recovered/Resolved]

NARRATIVE: CASE EVENT DATE: 20150820
